FAERS Safety Report 6273504-7 (Version None)
Quarter: 2009Q3

REPORT INFORMATION
  Report Type: 
  Country: None (occurrence: None)
  Receive Date: 20090720
  Receipt Date: 20090713
  Transmission Date: 20100115
  Serious: Yes (Other)
  Sender: FDA-Public Use
  Company Number: US-BAYER-200926423NA

PATIENT
  Sex: Female

DRUGS (1)
  1. YASMIN [Suspect]
     Indication: DRUG USE FOR UNKNOWN INDICATION
     Dosage: WRITTEN AS PATCH IN LEGAL BRIEF BY ATTORNEY
     Route: 048
     Dates: start: 20060301

REACTIONS (1)
  - CEREBROVASCULAR ACCIDENT [None]
